FAERS Safety Report 22206849 (Version 2)
Quarter: 2023Q2

REPORT INFORMATION
  Report Type: Report from Study
  Country: US (occurrence: None)
  Receive Date: 20230413
  Receipt Date: 20230419
  Transmission Date: 20230721
  Serious: Yes (Hospitalization)
  Sender: FDA-Public Use
  Company Number: US-ROCHE-3325637

PATIENT
  Age: 3 Year
  Sex: Male
  Weight: 15.7 kg

DRUGS (1)
  1. COBIMETINIB [Suspect]
     Active Substance: COBIMETINIB
     Indication: Langerhans^ cell histiocytosis
     Route: 048
     Dates: start: 20220420, end: 20230314

REACTIONS (2)
  - Vomiting [Unknown]
  - Hypernatraemia [Recovered/Resolved]

NARRATIVE: CASE EVENT DATE: 20230324
